FAERS Safety Report 13547096 (Version 2)
Quarter: 2017Q2

REPORT INFORMATION
  Report Type: Spontaneous
  Country: US (occurrence: US)
  Receive Date: 20170515
  Receipt Date: 20170601
  Transmission Date: 20170830
  Serious: Yes (Hospitalization, Other)
  Sender: FDA-Public Use
  Company Number: US-BAYER-2017-086204

PATIENT
  Age: 12 Year
  Sex: Male

DRUGS (2)
  1. MIRALAX [Suspect]
     Active Substance: POLYETHYLENE GLYCOL 3350
     Indication: CONSTIPATION
     Dosage: UNK (AT AGE OF 12)
  2. MIRALAX [Suspect]
     Active Substance: POLYETHYLENE GLYCOL 3350
     Indication: CONSTIPATION
     Dosage: UNK (AT AGE OF 14)

REACTIONS (9)
  - Social avoidant behaviour [Recovered/Resolved]
  - Crying [Recovered/Resolved]
  - Drug administered to patient of inappropriate age [Unknown]
  - Homicidal ideation [Recovered/Resolved]
  - Insomnia [Recovered/Resolved]
  - Sleep terror [Recovered/Resolved]
  - Suicidal ideation [Recovered/Resolved]
  - Product use issue [None]
  - Mental disorder [Recovered/Resolved]
